FAERS Safety Report 9441000 (Version 3)
Quarter: 2014Q2

REPORT INFORMATION
  Report Type: Report from Study
  Country: CN (occurrence: CN)
  Receive Date: 20130805
  Receipt Date: 20140404
  Transmission Date: 20141212
  Serious: Yes (Other)
  Sender: FDA-Public Use
  Company Number: CN-ROCHE-1256833

PATIENT
  Sex: Female
  Weight: 72 kg

DRUGS (1)
  1. AVASTIN [Suspect]
     Indication: RECTAL CANCER
     Route: 042
     Dates: start: 20120727, end: 201309

REACTIONS (7)
  - Splenomegaly [Unknown]
  - Hepatic function abnormal [Unknown]
  - Platelet count decreased [Recovering/Resolving]
  - Iodine allergy [Recovered/Resolved]
  - Constipation [Unknown]
  - Alanine aminotransferase increased [Recovered/Resolved]
  - Asthenia [Recovering/Resolving]
